FAERS Safety Report 13455603 (Version 3)
Quarter: 2017Q2

REPORT INFORMATION
  Report Type: Spontaneous
  Country: TR (occurrence: TR)
  Receive Date: 20170418
  Receipt Date: 20170616
  Transmission Date: 20170830
  Serious: Yes (Other)
  Sender: FDA-Public Use
  Company Number: TR-BAYER-2017-067374

PATIENT
  Age: 25 Year
  Sex: Female
  Weight: 68 kg

DRUGS (2)
  1. YASMIN [Suspect]
     Active Substance: DROSPIRENONE\ETHINYL ESTRADIOL
     Indication: CONTRACEPTION
     Dosage: UNK
     Route: 048
     Dates: start: 2002
  2. YASMIN [Suspect]
     Active Substance: DROSPIRENONE\ETHINYL ESTRADIOL
     Indication: CONTRACEPTION
     Dosage: UNK
     Dates: end: 20160918

REACTIONS (10)
  - Swelling [Recovering/Resolving]
  - Cushing^s syndrome [Recovered/Resolved]
  - Palpitations [None]
  - Stress [Recovered/Resolved]
  - Insulin resistance [Not Recovered/Not Resolved]
  - Skin discolouration [Not Recovered/Not Resolved]
  - Cortisol increased [Recovered/Resolved]
  - Mobility decreased [None]
  - Weight increased [Recovering/Resolving]
  - Weight increased [None]

NARRATIVE: CASE EVENT DATE: 20080101
